FAERS Safety Report 6481758-7 (Version None)
Quarter: 2009Q4

REPORT INFORMATION
  Report Type: 
  Country: None (occurrence: None)
  Receive Date: 20091208
  Receipt Date: 20091204
  Transmission Date: 20100525
  Serious: Yes (Death)
  Sender: FDA-Public Use
  Company Number: US-GILEAD-2009-0025841

PATIENT
  Sex: Female

DRUGS (18)
  1. LETAIRIS [Suspect]
     Indication: PULMONARY ARTERIAL HYPERTENSION
     Route: 048
     Dates: start: 20091009
  2. COUMADIN [Concomitant]
  3. PROCARDIA XL [Concomitant]
  4. DIGOXIN [Concomitant]
  5. LASIX [Concomitant]
  6. SINGULAIR [Concomitant]
  7. FLONASE [Concomitant]
  8. REVATIO [Concomitant]
  9. PROVENTIL [Concomitant]
  10. PREDNISONE [Concomitant]
  11. AMBIEN [Concomitant]
  12. BONIVA [Concomitant]
  13. NEXIUM [Concomitant]
  14. CELEXA [Concomitant]
  15. RONDEC-DM [Concomitant]
  16. COLACE [Concomitant]
  17. VITAMIN D [Concomitant]
  18. POTASSIUM CHLORIDE [Concomitant]

REACTIONS (1)
  - DEATH [None]
